FAERS Safety Report 21571900 (Version 1)
Quarter: 2022Q4

REPORT INFORMATION
  Report Type: Spontaneous
  Country: US (occurrence: None)
  Receive Date: 20221108
  Receipt Date: 20221108
  Transmission Date: 20230113
  Serious: Yes (Death, Hospitalization)
  Sender: FDA-Public Use
  Company Number: None

PATIENT
  Sex: Female
  Weight: 67.1 kg

DRUGS (3)
  1. FLUOROURACIL [Suspect]
     Active Substance: FLUOROURACIL
  2. IRINOTECAN [Concomitant]
     Active Substance: IRINOTECAN
  3. LENCOVORIN CALCIUM [Concomitant]

REACTIONS (5)
  - Hypophagia [None]
  - Gait inability [None]
  - Loss of personal independence in daily activities [None]
  - General physical health deterioration [None]
  - Small intestinal obstruction [None]

NARRATIVE: CASE EVENT DATE: 20221031
